FAERS Safety Report 9226156 (Version 3)
Quarter: 2013Q3

REPORT INFORMATION
  Report Type: Spontaneous
  Country: US (occurrence: US)
  Receive Date: 20130411
  Receipt Date: 20130807
  Transmission Date: 20140515
  Serious: No
  Sender: FDA-Public Use
  Company Number: US-BAYER-2013-040094

PATIENT
  Age: 35 Year
  Sex: Female
  Weight: 51.7 kg

DRUGS (13)
  1. ALEVE CAPLET [Suspect]
     Indication: MIGRAINE
     Route: 048
  2. BAYER GENUINE ASPIRIN ORIGINAL STRENGTH [Suspect]
     Dosage: UNK
  3. NORTRIPTYLINE [Concomitant]
  4. SPIRONOLACTONE [Concomitant]
  5. ZANAFLEX [Concomitant]
  6. FLAX SEED OIL [Concomitant]
  7. MILK THISTLE [Concomitant]
  8. KELP [Concomitant]
  9. L-GLUTAMINE [GLUTAMIC ACID] [Concomitant]
  10. VITAMIN D [Concomitant]
  11. PARAFFIN [Concomitant]
  12. MAGNESIUM [Concomitant]
  13. CALCIUM [Concomitant]

REACTIONS (2)
  - Drug ineffective [None]
  - Drug hypersensitivity [None]
